FAERS Safety Report 7303821-0 (Version None)
Quarter: 2011Q1

REPORT INFORMATION
  Report Type: 
  Country: None (occurrence: None)
  Receive Date: 20110221
  Receipt Date: 20110214
  Transmission Date: 20110831
  Serious: Yes (Congenital Anomaly)
  Sender: FDA-Public Use
  Company Number: A0752257A

PATIENT
  Sex: Female
  Weight: 2.8 kg

DRUGS (1)
  1. PAXIL [Suspect]
     Indication: ANXIETY
     Dosage: 40MG PER DAY
     Route: 064
     Dates: start: 20020701, end: 20030501

REACTIONS (5)
  - CONGENITAL AORTIC STENOSIS [None]
  - CARDIAC MURMUR [None]
  - ARRHYTHMIA [None]
  - DRUG EXPOSURE DURING PREGNANCY [None]
  - CONGENITAL HEART VALVE DISORDER [None]
